FAERS Safety Report 6083244-5 (Version None)
Quarter: 2009Q1

REPORT INFORMATION
  Report Type: 
  Country: None (occurrence: None)
  Receive Date: 20090213
  Receipt Date: 20090213
  Transmission Date: 20090719
  Serious: Yes (Life-Threatening, Hospitalization)
  Sender: FDA-Public Use
  Company Number: None

PATIENT
  Age: 63 Year
  Sex: Female
  Weight: 109.9 kg

DRUGS (2)
  1. REMICADE [Suspect]
     Indication: RHEUMATOID ARTHRITIS
     Dosage: 3 MG/KG AS DIRECTED IV DRIP
     Route: 041
     Dates: start: 20081103, end: 20081215
  2. METHOTREXATE [Suspect]
     Indication: RHEUMATOID ARTHRITIS
     Dosage: 25 MG ONCE A WEEK IM
     Route: 030
     Dates: start: 20061201, end: 20090206

REACTIONS (4)
  - HAEMOPTYSIS [None]
  - MYALGIA [None]
  - PNEUMONIA STREPTOCOCCAL [None]
  - SEPTIC SHOCK [None]
